FAERS Safety Report 25887864 (Version 1)
Quarter: 2025Q4

REPORT INFORMATION
  Report Type: Spontaneous
  Country: GB (occurrence: GB)
  Receive Date: 20251007
  Receipt Date: 20251007
  Transmission Date: 20260118
  Serious: Yes (Other)
  Sender: BAXTER
  Company Number: GB-BAXTER-2025BAX021814

PATIENT
  Sex: Female

DRUGS (6)
  1. SODIUM CHLORIDE [Suspect]
     Active Substance: SODIUM CHLORIDE
     Dosage: 8 WEEKLY
     Route: 042
  2. WATER FOR INJECTION [Suspect]
     Active Substance: WATER
     Dosage: 8 WEEKLY
     Route: 042
  3. INFLIXIMAB [Suspect]
     Active Substance: INFLIXIMAB
     Indication: Colitis ulcerative
     Dosage: 270 MG, EVERY 8 WK
     Route: 042
  4. SODIUM CHLORIDE [Suspect]
     Active Substance: SODIUM CHLORIDE
     Indication: Catheter management
     Dosage: 0.9% SODIUM CHLORIDE PRE AND POST INFUSION
     Route: 065
  5. ACYCLOVIR [Suspect]
     Active Substance: ACYCLOVIR
     Dosage: 400 MG, BID (DAILY)
     Route: 048
     Dates: start: 202507
  6. FUCIDIN [Suspect]
     Active Substance: FUSIDATE SODIUM
     Dosage: UNK
     Route: 065
     Dates: start: 20250807

REACTIONS (5)
  - Impetigo [Unknown]
  - Scab [Unknown]
  - Blister [Unknown]
  - Skin weeping [Unknown]
  - Rash [Unknown]

NARRATIVE: CASE EVENT DATE: 20250716
